FAERS Safety Report 10884045 (Version 1)
Quarter: 2015Q1

REPORT INFORMATION
  Report Type: Spontaneous
  Country: AU (occurrence: None)
  Receive Date: 20150227
  Receipt Date: 20150227
  Transmission Date: 20150721
  Serious: Yes (Death, Hospitalization, Other)
  Sender: FDA-Public Use
  Company Number: AXC-2015-000075

PATIENT
  Sex: Male

DRUGS (4)
  1. URSODEOXYCHOLIC ACID (URSODEOXYCHOLIC ACID) UNKNOWN) [Suspect]
     Active Substance: URSODIOL
     Indication: PRODUCT USED FOR UNKNOWN INDICATION
     Route: 048
     Dates: end: 201109
  2. CLARITHROMYCIN. [Concomitant]
     Active Substance: CLARITHROMYCIN
  3. ATORVASTATIN [Concomitant]
     Active Substance: ATORVASTATIN
  4. CLOPIDOGREL [Concomitant]
     Active Substance: CLOPIDOGREL BISULFATE

REACTIONS (17)
  - Herpes zoster [None]
  - General physical health deterioration [None]
  - Hypotension [None]
  - Weight decreased [None]
  - Pneumonia [None]
  - Oesophageal candidiasis [None]
  - Bacterial pyelonephritis [None]
  - Cholestasis [None]
  - Hodgkin^s disease [None]
  - Peritonitis bacterial [None]
  - Staphylococcal infection [None]
  - Bacterial sepsis [None]
  - Ascites [None]
  - Osteomyelitis [None]
  - Splenomegaly [None]
  - Prostatitis [None]
  - Cytomegalovirus oesophagitis [None]

NARRATIVE: CASE EVENT DATE: 201107
